FAERS Safety Report 4700124-5 (Version None)
Quarter: 2005Q2

REPORT INFORMATION
  Report Type: 
  Country: None (occurrence: None)
  Receive Date: 20050627
  Receipt Date: 20050617
  Transmission Date: 20051028
  Serious: Yes (Death, Hospitalization)
  Sender: FDA-Public Use
  Company Number: US-KINGPHARMUSA00001-K200500848

PATIENT
  Age: 94 Year
  Sex: Male

DRUGS (8)
  1. ALTACE [Suspect]
     Dosage: 2.5 MG, QD
     Route: 048
     Dates: end: 20050512
  2. LASIX [Suspect]
     Dosage: 20 MG, QD
     Route: 048
     Dates: end: 20050512
  3. OFLOCET [Suspect]
     Dosage: 400 MG, QD
     Route: 042
     Dates: start: 20050508, end: 20050512
  4. HEMIGOXINE NATIVELLE [Suspect]
     Dosage: .125 MG, QD
     Route: 048
     Dates: end: 20050512
  5. CALCIPARINE ^DIFREX^ [Suspect]
     Dosage: .4 ML, QD
     Route: 058
     Dates: start: 20050508, end: 20050511
  6. ROCEPHIN [Suspect]
     Dosage: 1 G, QD
     Route: 042
     Dates: start: 20050508, end: 20050508
  7. PANTOPRAZOLE SODIUM [Concomitant]
  8. AUGMENTIN [Suspect]
     Dates: start: 20050509, end: 20050512

REACTIONS (3)
  - PULMONARY SEPSIS [None]
  - SEPTIC SHOCK [None]
  - THROMBOCYTOPENIA [None]
